FAERS Safety Report 5897322-4 (Version None)
Quarter: 2008Q3

REPORT INFORMATION
  Report Type: 
  Country: None (occurrence: None)
  Receive Date: 20080910
  Receipt Date: 20080717
  Transmission Date: 20090109
  Serious: Yes (Hospitalization)
  Sender: FDA-Public Use
  Company Number: GP-08-07-0005

PATIENT
  Sex: Female

DRUGS (2)
  1. PRAVASTATIN SODIUM [Suspect]
     Dosage: 40 MG, Q.D., P.O.
     Route: 048
  2. PRAVASTATIN SODIUM [Suspect]
     Dosage: 20 MG, Q.D., P.O.
     Route: 048

REACTIONS (1)
  - HYPOAESTHESIA FACIAL [None]
